FAERS Safety Report 24017948 (Version 2)
Quarter: 2025Q1

REPORT INFORMATION
  Report Type: Spontaneous
  Country: IN (occurrence: IN)
  Receive Date: 20240627
  Receipt Date: 20250130
  Transmission Date: 20250408
  Serious: Yes (Death, Other)
  Sender: PFIZER
  Company Number: IN-PFIZER INC-PV202400082018

PATIENT
  Age: 72 Year
  Sex: Female

DRUGS (9)
  1. LORLATINIB [Suspect]
     Active Substance: LORLATINIB
     Dosage: 100 MG, 1X/DAY
     Route: 048
     Dates: start: 20230704
  2. PAN [Concomitant]
     Dosage: 40 MG, 1X/DAY
  3. ELIQUIS [Concomitant]
     Active Substance: APIXABAN
     Dosage: 2.5 MG, 1X/DAY
  4. CILNIDIPINE [Concomitant]
     Active Substance: CILNIDIPINE
     Dosage: 10 MG, 2X/DAY
  5. PULMOCLEAR LS [Concomitant]
     Indication: Cough
  6. ATORVASTATIN CALCIUM [Concomitant]
     Active Substance: ATORVASTATIN CALCIUM
  7. ALPRAZOLAM [Concomitant]
     Active Substance: ALPRAZOLAM
  8. BUDESONIDE [Concomitant]
     Active Substance: BUDESONIDE
     Dosage: UNK, 1X/DAY
  9. LEVALBUTEROL HYDROCHLORIDE [Concomitant]
     Active Substance: LEVALBUTEROL HYDROCHLORIDE
     Dosage: UNK, 2X/DAY

REACTIONS (7)
  - Death [Fatal]
  - Haemoglobin decreased [Unknown]
  - Oedema peripheral [Unknown]
  - Pyrexia [Unknown]
  - Cardiomegaly [Unknown]
  - Blood glucose increased [Unknown]
  - Blood urea increased [Unknown]

NARRATIVE: CASE EVENT DATE: 20240501
